FAERS Safety Report 9897533 (Version 5)
Quarter: 2015Q2

REPORT INFORMATION
  Report Type: Spontaneous
  Country: US (occurrence: US)
  Receive Date: 20140214
  Receipt Date: 20150422
  Transmission Date: 20150821
  Serious: Yes (Other)
  Sender: FDA-Public Use
  Company Number: US-BAYER-2014-023619

PATIENT
  Age: 26 Year
  Sex: Female

DRUGS (1)
  1. MIRENA [Suspect]
     Active Substance: LEVONORGESTREL
     Dosage: 20 MCG/24HR, CONT
     Route: 015
     Dates: start: 20080501, end: 20110208

REACTIONS (7)
  - Device dislocation [None]
  - Device failure [None]
  - Pregnancy with contraceptive device [None]
  - Injury [None]
  - Pain [None]
  - Drug ineffective [None]
  - Emotional distress [None]

NARRATIVE: CASE EVENT DATE: 2010
